FAERS Safety Report 9156702 (Version 1)
Quarter: 2013Q1

REPORT INFORMATION
  Report Type: Spontaneous
  Country: US (occurrence: None)
  Receive Date: 20130308
  Receipt Date: 20130308
  Transmission Date: 20140127
  Serious: No
  Sender: FDA-Public Use
  Company Number: None

PATIENT
  Sex: Female
  Weight: 109.6 kg

DRUGS (8)
  1. CARBOPLATIN [Suspect]
  2. PACLITAXEL (TAXOL) [Suspect]
  3. ALDACTONE [Concomitant]
  4. LANOXIN [Concomitant]
  5. NORVASC [Concomitant]
  6. PACERONE [Concomitant]
  7. PRINIVIL [Concomitant]
  8. LOPRESSOR [Concomitant]

REACTIONS (6)
  - Muscle spasms [None]
  - Pain in extremity [None]
  - Chest pain [None]
  - Nausea [None]
  - Vomiting [None]
  - Infusion related reaction [None]
